FAERS Safety Report 8796773 (Version 1)
Quarter: 2012Q4

REPORT INFORMATION
  Report Type: 
  Country: US (occurrence: US)
  Receive Date: 20120919
  Receipt Date: 20120919
  Transmission Date: 20130627
  Serious: Yes (Other)
  Sender: FDA-Public Use
  Company Number: US-BAYER-2012-097050

PATIENT
  Age: 55 Year
  Sex: Male
  Weight: 118 kg

DRUGS (20)
  1. MAGNEVIST [Suspect]
     Indication: NUCLEAR MAGNETIC RESONANCE IMAGING BRAIN
     Dosage: 20 ml, ONCE
     Route: 042
     Dates: start: 20040527, end: 20040527
  2. OMNISCAN [Suspect]
     Indication: NUCLEAR MAGNETIC RESONANCE IMAGING
     Dosage: UNK UNK, ONCE
     Dates: start: 20030410, end: 20030410
  3. OMNISCAN [Suspect]
     Indication: NUCLEAR MAGNETIC RESONANCE IMAGING
     Dosage: UNK
     Dates: start: 20030411, end: 20030411
  4. OMNISCAN [Suspect]
     Indication: NUCLEAR MAGNETIC RESONANCE IMAGING
     Dosage: UNK
     Dates: start: 20031001, end: 20031001
  5. OPTIMARK [Suspect]
     Indication: NUCLEAR MAGNETIC RESONANCE IMAGING BRAIN
     Dosage: 20 ml, ONCE
     Dates: start: 20030403, end: 20030403
  6. OPTIMARK [Suspect]
     Indication: NUCLEAR MAGNETIC RESONANCE IMAGING
  7. LOTENSIN [Concomitant]
  8. LISINOPRIL [Concomitant]
  9. HCTZ [Concomitant]
  10. POTASSIUM [Concomitant]
  11. ANALGESICS [Concomitant]
     Dosage: UNK
  12. PERCOCET [Concomitant]
  13. DECADRON [Concomitant]
  14. AUGMENTIN [Concomitant]
  15. MORPHINE SULFATE [Concomitant]
  16. CLONIDINE [Concomitant]
  17. ZINACEF [Concomitant]
  18. PEPCID [Concomitant]
  19. PERI-COLACE [Concomitant]
  20. MULTIVITAMIN AND MINERAL SUPPLEMENT [Concomitant]

REACTIONS (21)
  - Nephrogenic systemic fibrosis [None]
  - Musculoskeletal stiffness [None]
  - Arthralgia [None]
  - Skin mass [None]
  - Skin induration [None]
  - Skin hyperpigmentation [None]
  - Joint contracture [None]
  - Skin disorder [None]
  - Pain in extremity [None]
  - Injury [None]
  - Muscular weakness [None]
  - Hypoaesthesia [None]
  - Gait disturbance [None]
  - Muscle tightness [None]
  - Skin tightness [None]
  - Pruritus [None]
  - Joint range of motion decreased [None]
  - Asthenia [None]
  - Oedema [None]
  - Hypoaesthesia [None]
  - Pigmentation disorder [None]
